FAERS Safety Report 23112248 (Version 1)
Quarter: 2023Q4

REPORT INFORMATION
  Report Type: Report from Study
  Country: US (occurrence: US)
  Receive Date: 20231026
  Receipt Date: 20231026
  Transmission Date: 20240109
  Serious: Yes (Hospitalization, Other)
  Sender: FDA-Public Use
  Company Number: US-ABBVIE-5375294

PATIENT
  Sex: Female
  Weight: 96 kg

DRUGS (14)
  1. RINVOQ [Suspect]
     Active Substance: UPADACITINIB
     Indication: Psoriatic arthropathy
     Route: 048
     Dates: end: 20230715
  2. LISINOPRIL [Concomitant]
     Active Substance: LISINOPRIL
     Indication: Hypertension
     Dosage: EVERY NIGHT AT BEDTIME
     Route: 048
  3. BUSPIRONE [Concomitant]
     Active Substance: BUSPIRONE HYDROCHLORIDE
     Indication: Anxiety
     Dosage: EVERY MORNING
     Route: 048
  4. BUSPIRONE [Concomitant]
     Active Substance: BUSPIRONE HYDROCHLORIDE
     Indication: Anxiety
     Dosage: EVERY NIGHT AT BEDTIME
     Route: 048
  5. PREDNISONE [Concomitant]
     Active Substance: PREDNISONE
     Indication: Chronic obstructive pulmonary disease
     Dosage: EVERY MORNING
     Route: 048
  6. PREDNISONE [Concomitant]
     Active Substance: PREDNISONE
     Indication: Chronic obstructive pulmonary disease
     Dosage: TAKE 2 TABLETS BY MOUTH DAILY FOR 10 DAYS FOR ULCERATIVE COLITIS
     Route: 048
     Dates: start: 20230808
  7. ELIQUIS [Concomitant]
     Active Substance: APIXABAN
     Indication: Pulmonary embolism
     Dosage: TAKE 2 TABLETS BY MOUTH 2 TIMES DAILY FOR 4 DAYS, THEN 1 TABLET 2 TIMES DAILY
     Route: 048
     Dates: start: 20230807
  8. ASPIRIN [Concomitant]
     Active Substance: ASPIRIN
     Indication: Peripheral embolism
     Dosage: 81 MG CHEWABLE TABLET?TAKE 1 TABLET BY MOUTH DAILY
     Route: 048
  9. VITAMIN D [Concomitant]
     Active Substance: VITAMIN D NOS
     Indication: Product used for unknown indication
     Route: 048
  10. TRAMADOL [Concomitant]
     Active Substance: TRAMADOL\TRAMADOL HYDROCHLORIDE
     Indication: Product used for unknown indication
     Dosage: 50 MG TABLET
  11. MAGNESIUM OXIDE [Concomitant]
     Active Substance: MAGNESIUM OXIDE
     Indication: Product used for unknown indication
     Dosage: 400 MG MAGNESIUM TAB
  12. FLUTICASONE PROPIONATE [Concomitant]
     Active Substance: FLUTICASONE PROPIONATE
     Indication: Product used for unknown indication
     Dosage: 50 MCG/ACTUATION NASAL SPRAY
  13. ESOMEPRAZOLE [Concomitant]
     Active Substance: ESOMEPRAZOLE
     Indication: Product used for unknown indication
     Dosage: 40 MG CAPSULE
  14. LOMOTIL [Concomitant]
     Active Substance: ATROPINE SULFATE\DIPHENOXYLATE HYDROCHLORIDE
     Indication: Product used for unknown indication
     Dosage: 2.5-0.025 MG PER TABLET

REACTIONS (13)
  - Pulmonary embolism [Unknown]
  - Thrombosis [Recovered/Resolved]
  - Cor pulmonale acute [Unknown]
  - Shoulder arthroplasty [Unknown]
  - Joint effusion [Unknown]
  - Cardiomegaly [Unknown]
  - Chronic respiratory failure [Unknown]
  - Venous thrombosis limb [Unknown]
  - Tachycardia [Unknown]
  - Vascular operation [Unknown]
  - Normocytic anaemia [Unknown]
  - Pulmonary oedema [Unknown]
  - Respiratory distress [Unknown]

NARRATIVE: CASE EVENT DATE: 20230101
